FAERS Safety Report 5377425-3 (Version None)
Quarter: 2007Q3

REPORT INFORMATION
  Report Type: 
  Country: None (occurrence: None)
  Receive Date: 20070703
  Receipt Date: 20070628
  Transmission Date: 20080115
  Serious: Yes (Other)
  Sender: FDA-Public Use
  Company Number: B0477414A

PATIENT
  Age: 44 Year
  Sex: Female

DRUGS (3)
  1. AROPAX [Suspect]
     Indication: DRUG USE FOR UNKNOWN INDICATION
     Route: 048
     Dates: start: 20060101, end: 20070626
  2. LUVOX [Concomitant]
     Dates: start: 20070622
  3. TEMAZEPAM [Concomitant]
     Dates: start: 20070625

REACTIONS (11)
  - COLD SWEAT [None]
  - DRUG WITHDRAWAL SYNDROME [None]
  - FEELING ABNORMAL [None]
  - FUNGAL INFECTION [None]
  - INSOMNIA [None]
  - IRRITABILITY [None]
  - NAUSEA [None]
  - NIGHTMARE [None]
  - OBSESSIVE THOUGHTS [None]
  - POOR QUALITY SLEEP [None]
  - SENSORY DISTURBANCE [None]
